FAERS Safety Report 11140927 (Version 1)
Quarter: 2015Q2

REPORT INFORMATION
  Report Type: Spontaneous
  Country: US (occurrence: US)
  Receive Date: 20150527
  Receipt Date: 20150527
  Transmission Date: 20150821
  Serious: Yes (Hospitalization)
  Sender: FDA-Public Use
  Company Number: PHEH2015US009547

PATIENT
  Sex: Female

DRUGS (1)
  1. TASIGNA [Suspect]
     Active Substance: NILOTINIB
     Indication: PRODUCT USED FOR UNKNOWN INDICATION
     Dosage: 300 MG, BID (2 X150 MG, BID)
     Route: 048

REACTIONS (4)
  - Erythema [Unknown]
  - Cellulitis [Unknown]
  - Muscle spasms [Unknown]
  - Poor peripheral circulation [Unknown]
